FAERS Safety Report 16920020 (Version 1)
Quarter: 2019Q4

REPORT INFORMATION
  Report Type: Spontaneous
  Country: US (occurrence: US)
  Receive Date: 20191015
  Receipt Date: 20191015
  Transmission Date: 20200122
  Serious: No
  Sender: FDA-Public Use
  Company Number: None

PATIENT
  Age: 74 Year
  Sex: Female
  Weight: 56.25 kg

DRUGS (2)
  1. DEXAMETHASONE. [Suspect]
     Active Substance: DEXAMETHASONE
     Indication: HEAD AND NECK CANCER
     Dosage: ?          OTHER FREQUENCY:ONCE Q 21 DAYS;?
     Route: 042
     Dates: start: 20191004
  2. CISPLATIN. [Suspect]
     Active Substance: CISPLATIN
     Indication: HEAD AND NECK CANCER
     Dosage: ?          OTHER FREQUENCY:ONCE Q 21 DAYS;?
     Route: 042
     Dates: start: 20191004

REACTIONS (1)
  - Disease progression [None]
